FAERS Safety Report 18605283 (Version 1)
Quarter: 2020Q4

REPORT INFORMATION
  Report Type: Spontaneous
  Country: JP (occurrence: JP)
  Receive Date: 20201211
  Receipt Date: 20201211
  Transmission Date: 20210114
  Serious: Yes (Death, Other)
  Sender: FDA-Public Use
  Company Number: JP-TAKEDA-2020TUS057200

PATIENT
  Age: 6 Decade
  Sex: Male

DRUGS (2)
  1. DEXAMETHASONE. [Concomitant]
     Active Substance: DEXAMETHASONE
     Indication: PRIMARY AMYLOIDOSIS
     Dosage: UNK
     Route: 065
  2. VELCADE [Suspect]
     Active Substance: BORTEZOMIB
     Indication: PRIMARY AMYLOIDOSIS
     Dosage: UNK
     Route: 065

REACTIONS (3)
  - Arrhythmia [Fatal]
  - Product use in unapproved indication [Unknown]
  - Off label use [Unknown]
